FAERS Safety Report 6430477-1 (Version None)
Quarter: 2009Q4

REPORT INFORMATION
  Report Type: 
  Country: None (occurrence: None)
  Receive Date: 20091106
  Receipt Date: 20091028
  Transmission Date: 20100525
  Serious: Yes (Hospitalization)
  Sender: FDA-Public Use
  Company Number: US-ELI_LILLY_AND_COMPANY-US200910007637

PATIENT
  Sex: Male

DRUGS (8)
  1. ALIMTA [Suspect]
     Indication: NON-SMALL CELL LUNG CANCER
  2. CRESTOR [Concomitant]
  3. ZETIA [Concomitant]
  4. DIOVAN [Concomitant]
  5. ASPIRIN [Concomitant]
  6. CARAFATE [Concomitant]
  7. PRILOSEC [Concomitant]
  8. MEGACE [Concomitant]

REACTIONS (1)
  - HAEMORRHAGE [None]
